FAERS Safety Report 11611237 (Version 1)
Quarter: 2015Q4

REPORT INFORMATION
  Report Type: Spontaneous
  Country: GB (occurrence: GB)
  Receive Date: 20151008
  Receipt Date: 20151008
  Transmission Date: 20160304
  Serious: Yes (Other)
  Sender: FDA-Public Use
  Company Number: PHFR2015GB007362

PATIENT
  Sex: Male

DRUGS (1)
  1. CLOZARIL [Suspect]
     Active Substance: CLOZAPINE
     Indication: SCHIZOPHRENIA
     Dosage: 375 MG, QD
     Route: 048
     Dates: start: 20140718, end: 20151002

REACTIONS (5)
  - Malaise [Unknown]
  - Pleural effusion [Unknown]
  - Blood albumin decreased [Unknown]
  - Antipsychotic drug level increased [Unknown]
  - C-reactive protein increased [Unknown]
